FAERS Safety Report 9422782 (Version 1)
Quarter: 2013Q3

REPORT INFORMATION
  Report Type: Report from Study
  Country: CA (occurrence: CA)
  Receive Date: 20130726
  Receipt Date: 20130726
  Transmission Date: 20140515
  Serious: Yes (Hospitalization)
  Sender: FDA-Public Use
  Company Number: CA-JNJFOC-20130712059

PATIENT
  Age: 28 Year
  Sex: Female
  Weight: 92.99 kg

DRUGS (1)
  1. REMICADE [Suspect]
     Indication: COLITIS ULCERATIVE
     Route: 042
     Dates: start: 200305

REACTIONS (2)
  - Postpartum haemorrhage [Unknown]
  - Exposure during pregnancy [Recovered/Resolved]
